FAERS Safety Report 5865307-X (Version None)
Quarter: 2008Q3

REPORT INFORMATION
  Report Type: 
  Country: None (occurrence: None)
  Receive Date: 20080829
  Receipt Date: 20080821
  Transmission Date: 20090109
  Serious: Yes (Hospitalization, Other)
  Sender: FDA-Public Use
  Company Number: US-MERCK-0603USA04129

PATIENT
  Age: 53 Year
  Sex: Female
  Weight: 77 kg

DRUGS (12)
  1. FOSAMAX [Suspect]
     Indication: OSTEOPOROSIS
     Route: 048
     Dates: start: 20010404
  2. FOSAMAX [Suspect]
     Route: 048
     Dates: end: 20060201
  3. FOSAMAX [Suspect]
     Route: 048
  4. FOSAMAX [Suspect]
     Indication: OSTEOPENIA
     Route: 048
     Dates: start: 20010404
  5. FOSAMAX [Suspect]
     Route: 048
     Dates: end: 20060201
  6. FOSAMAX [Suspect]
     Route: 048
  7. ZOCOR [Concomitant]
     Indication: BLOOD CHOLESTEROL INCREASED
     Route: 048
     Dates: start: 20020101
  8. PRILOSEC [Concomitant]
     Route: 065
     Dates: start: 19990101
  9. ESTRATEST [Concomitant]
     Route: 065
  10. PROZAC [Concomitant]
     Route: 065
  11. CARBIDOPA AND LEVODOPA [Concomitant]
     Route: 065
  12. CARBIDOPA AND LEVODOPA [Concomitant]
     Route: 065

REACTIONS (41)
  - ANXIETY [None]
  - ARTHRITIS [None]
  - BONE PAIN [None]
  - CARDIAC DISORDER [None]
  - CARPAL TUNNEL SYNDROME [None]
  - CHRONIC SINUSITIS [None]
  - COLITIS [None]
  - DYSPHAGIA [None]
  - FALL [None]
  - FIBROCYSTIC BREAST DISEASE [None]
  - GASTROOESOPHAGEAL REFLUX DISEASE [None]
  - HAEMORRHAGE [None]
  - HEADACHE [None]
  - HIATUS HERNIA [None]
  - HYPERLIPIDAEMIA [None]
  - INAPPROPRIATE SCHEDULE OF DRUG ADMINISTRATION [None]
  - LOWER GASTROINTESTINAL HAEMORRHAGE [None]
  - LUNG INFILTRATION [None]
  - MEMORY IMPAIRMENT [None]
  - MENOPAUSAL SYMPTOMS [None]
  - MYALGIA [None]
  - NECK PAIN [None]
  - OESOPHAGEAL CANDIDIASIS [None]
  - OESOPHAGEAL STENOSIS [None]
  - ORAL CANDIDIASIS [None]
  - OSTEONECROSIS [None]
  - OVERDOSE [None]
  - PHARYNGITIS [None]
  - PSEUDARTHROSIS [None]
  - PYREXIA [None]
  - RADICULOPATHY [None]
  - RECTAL HAEMORRHAGE [None]
  - REFLUX LARYNGITIS [None]
  - ROTATOR CUFF SYNDROME [None]
  - SPINAL COMPRESSION FRACTURE [None]
  - SPINAL DISORDER [None]
  - SPINAL OSTEOARTHRITIS [None]
  - STRESS URINARY INCONTINENCE [None]
  - SWELLING [None]
  - URINARY TRACT INFECTION [None]
  - WOUND DRAINAGE [None]
